FAERS Safety Report 15434214 (Version 1)
Quarter: 2018Q3

REPORT INFORMATION
  Report Type: Spontaneous
  Country: US (occurrence: US)
  Receive Date: 20180921
  Receipt Date: 20180921
  Transmission Date: 20181010
  Serious: Yes (Life-Threatening, Hospitalization)
  Sender: FDA-Public Use
  Company Number: None

PATIENT
  Age: 29 Year
  Sex: Male
  Weight: 91.4 kg

DRUGS (1)
  1. SUGAMMADEX [Suspect]
     Active Substance: SUGAMMADEX
     Dosage: ?          OTHER FREQUENCY:ONCE;?

REACTIONS (4)
  - Mean arterial pressure decreased [None]
  - Tachycardia [None]
  - Oxygen saturation abnormal [None]
  - Bronchospasm [None]

NARRATIVE: CASE EVENT DATE: 20170910
